FAERS Safety Report 7755153-4 (Version None)
Quarter: 2011Q3

REPORT INFORMATION
  Report Type: 
  Country: None (occurrence: None)
  Receive Date: 20110916
  Receipt Date: 20110912
  Transmission Date: 20111222
  Serious: Yes (Other)
  Sender: FDA-Public Use
  Company Number: US-PFIZER INC-2011199383

PATIENT
  Sex: Female
  Weight: 68.5 kg

DRUGS (3)
  1. LYRICA [Suspect]
     Indication: NEUROPATHY PERIPHERAL
  2. LEVOTHYROXINE [Concomitant]
     Indication: HYPOTHYROIDISM
     Dosage: UNK
  3. LYRICA [Suspect]
     Indication: MUSCLE SPASMS
     Dosage: 75 MG, 2X/DAY
     Route: 048
     Dates: start: 20110816, end: 20110817

REACTIONS (5)
  - ACTIVITIES OF DAILY LIVING IMPAIRED [None]
  - FEELING ABNORMAL [None]
  - VISION BLURRED [None]
  - HYPOAESTHESIA [None]
  - FALL [None]
